FAERS Safety Report 10049802 (Version 3)
Quarter: 2015Q3

REPORT INFORMATION
  Report Type: Report from Study
  Country: DE (occurrence: DE)
  Receive Date: 20140401
  Receipt Date: 20150924
  Transmission Date: 20151125
  Serious: No
  Sender: FDA-Public Use
  Company Number: DE-BEH-2014041459

PATIENT
  Age: 35 Year
  Sex: Female
  Weight: 78 kg

DRUGS (7)
  1. METFORMIN [Concomitant]
     Active Substance: METFORMIN HYDROCHLORIDE
  2. RAMIPRIL. [Concomitant]
     Active Substance: RAMIPRIL
  3. FIBROGAMMIN [Suspect]
     Active Substance: FACTOR XIII CONCENTRATE (HUMAN)
     Indication: FACTOR XIII DEFICIENCY
     Dosage: 1250
     Route: 042
     Dates: start: 20090928, end: 20091012
  4. PRIVIGEN [Suspect]
     Active Substance: HUMAN IMMUNOGLOBULIN G
     Indication: IMMUNODEFICIENCY
     Dosage: INFUSION RATE MIN. 30 ML/MIN, MAX. 50 ML/MIN
     Route: 042
     Dates: start: 20091002, end: 20091002
  5. PRIVIGEN [Suspect]
     Active Substance: HUMAN IMMUNOGLOBULIN G
     Dosage: INFUSION RATE MIN. 30 ML/MIN, MAX. 50 ML/MIN
     Route: 042
     Dates: start: 20091002, end: 20091002
  6. HAEMATE [Suspect]
     Active Substance: ANTIHEMOPHILIC FACTOR HUMAN
     Dosage: 2000
     Route: 042
     Dates: start: 20091005, end: 20091012
  7. CLEXANE [Concomitant]
     Active Substance: ENOXAPARIN SODIUM
     Route: 058

REACTIONS (4)
  - Abortion [Unknown]
  - Coagulopathy [Unknown]
  - Habitual abortion [Unknown]
  - Exposure during pregnancy [Unknown]

NARRATIVE: CASE EVENT DATE: 20091012
